FAERS Safety Report 7131207 (Version 2)
Quarter: 2015Q1

REPORT INFORMATION
  Report Type: Report from Study
  Country: CN (occurrence: CN)
  Receive Date: 20090925
  Receipt Date: 20150112
  Transmission Date: 20150721
  Serious: Yes (Death)
  Sender: FDA-Public Use
  Company Number: CN-ROCHE-657762

PATIENT
  Age: 67 Year
  Sex: Male
  Weight: 60 kg

DRUGS (3)
  1. CISPLATIN. [Suspect]
     Active Substance: CISPLATIN
     Indication: METASTATIC GASTRIC CANCER
     Dosage: DOSAGE FORM: INFUSION.  FREQUENCY: D1Q3W.  THERAPY PERMANENTLY DISCONTINUED.
     Route: 042
  2. CAPECITABINE. [Suspect]
     Active Substance: CAPECITABINE
     Indication: METASTATIC GASTRIC CANCER
     Dosage: FREQUENCY: D1-D14Q3W.  ROUTE: BID PO.  THERAPY PERMANENTLY DISCONTINUED.
     Route: 048
  3. PLACEBO [Suspect]
     Active Substance: UNSPECIFIED INGREDIENT
     Indication: METASTATIC GASTRIC CANCER
     Dosage: DOSAGE FORM: INFUSION.  FREQUENCY: D1Q3W.  THERAPY PERMANENTLY DISCONTINUED
     Route: 042
     Dates: start: 20090807, end: 20090911

REACTIONS (1)
  - Septic shock [Fatal]

NARRATIVE: CASE EVENT DATE: 20090919
